FAERS Safety Report 26212402 (Version 1)
Quarter: 2025Q4

REPORT INFORMATION
  Report Type: Spontaneous
  Country: US (occurrence: US)
  Receive Date: 20251230
  Receipt Date: 20251230
  Transmission Date: 20260117
  Serious: Yes (Death, Life-Threatening, Hospitalization, Other)
  Sender: CIPLA
  Company Number: US-CIPLA LTD.-2025US16613

PATIENT

DRUGS (1)
  1. ATORVASTATIN [Suspect]
     Active Substance: ATORVASTATIN
     Indication: Product used for unknown indication
     Dosage: UNK
     Route: 065

REACTIONS (6)
  - Necrotising myositis [Fatal]
  - Pharyngeal haemorrhage [Unknown]
  - Aspiration [Unknown]
  - Hypoxia [Unknown]
  - Coagulopathy [Unknown]
  - Acute kidney injury [Unknown]
